FAERS Safety Report 7401305-2 (Version None)
Quarter: 2011Q2

REPORT INFORMATION
  Report Type: 
  Country: None (occurrence: None)
  Receive Date: 20110407
  Receipt Date: 20110328
  Transmission Date: 20111010
  Serious: Yes (Death, Other)
  Sender: FDA-Public Use
  Company Number: US-AMGEN-USASP2011016672

PATIENT
  Age: 52 Year
  Sex: Female

DRUGS (1)
  1. FILGRASTIM [Suspect]
     Indication: HAEMATOPOIETIC STEM CELL MOBILISATION
     Dosage: 10 A?G/KG, QD

REACTIONS (8)
  - HYPOXIA [None]
  - PLEURAL EFFUSION [None]
  - CARDIAC FAILURE [None]
  - DYSPNOEA [None]
  - MULTI-ORGAN FAILURE [None]
  - DIZZINESS [None]
  - HYPOTENSION [None]
  - OEDEMA PERIPHERAL [None]
